FAERS Safety Report 6832914-7 (Version None)
Quarter: 2010Q3

REPORT INFORMATION
  Report Type: 
  Country: None (occurrence: None)
  Receive Date: 20100712
  Receipt Date: 20070324
  Transmission Date: 20110219
  Serious: No
  Sender: FDA-Public Use
  Company Number: US-PFIZER INC-2007024280

PATIENT
  Sex: Female
  Weight: 61.69 kg

DRUGS (6)
  1. CHANTIX [Suspect]
     Indication: SMOKING CESSATION THERAPY
     Dates: start: 20070301
  2. PRILOSEC [Concomitant]
     Indication: GASTROOESOPHAGEAL REFLUX DISEASE
  3. ESTRATEST [Concomitant]
  4. DICLOFENAC SODIUM [Concomitant]
  5. ANALGESICS [Concomitant]
  6. ALLERGY MEDICATION [Concomitant]

REACTIONS (1)
  - NAUSEA [None]
